FAERS Safety Report 17450259 (Version 1)
Quarter: 2020Q1

REPORT INFORMATION
  Report Type: Spontaneous
  Country: ES (occurrence: ES)
  Receive Date: 20200224
  Receipt Date: 20200224
  Transmission Date: 20200409
  Serious: Yes (Life-Threatening, Other)
  Sender: FDA-Public Use
  Company Number: ES-ACCORD-173603

PATIENT
  Age: 52 Year
  Sex: Female

DRUGS (7)
  1. LORAZEPAM VIR [Concomitant]
     Indication: INSOMNIA
     Dosage: TABLETS ORALLY, 1 MG / 24 HOURS,STRENGTH:1 MG ,50 TABLETS
     Route: 048
     Dates: start: 20150930
  2. TRAZODONE [Suspect]
     Active Substance: TRAZODONE HYDROCHLORIDE
     Indication: DEPRESSION
     Dosage: 100 MG TABLETS, 0.5 TABLET / 24 HOURS ORALLY
     Route: 048
     Dates: start: 20191226, end: 20200101
  3. PEPTICUM [Concomitant]
     Active Substance: OMEPRAZOLE
     Indication: GASTROOESOPHAGEAL REFLUX DISEASE
     Dosage: 40 MG CAPSULES ORALLY, 1 CAPSULE / 24 HOURS, STRENGTH: 40 MG, 28 CAPSULES
     Route: 048
     Dates: start: 20190225
  4. PREGABALIN ARISTO [Concomitant]
     Dosage: 75 MILLIGRAM CAPSULES, 1 CAPSULE EVERY 8 HOURS, STRENGTH: 75 MG HARD CAPSULES EFG, 56 CAPSULES
     Route: 048
     Dates: start: 20150330
  5. ZARELIS RETARD [Interacting]
     Active Substance: VENLAFAXINE HYDROCHLORIDE
     Indication: DEPRESSION
     Dosage: 225 MG TABLETS, 1 TABLET / 24 HOURS VIA ORAL, STRENGTH:225 MG, 30 TABLETS
     Route: 048
     Dates: start: 20181210
  6. CLANDERON [Interacting]
     Active Substance: ACETAMINOPHEN\TRAMADOL HYDROCHLORIDE
     Indication: BONE PAIN
     Dosage: 37.5 / 325 MG TABLETS ORALLY, 1 TABLET EVERY 12 HOURS
     Route: 048
     Dates: start: 20150415
  7. ETORICOXIB VIR [Concomitant]
     Indication: OSTEOARTHRITIS
     Dosage: 90 MG TABLETS ORALLY, 1 TABLET / 24 HOURS
     Route: 048
     Dates: start: 20150325

REACTIONS (2)
  - Serotonin syndrome [Recovered/Resolved]
  - Drug interaction [Unknown]

NARRATIVE: CASE EVENT DATE: 20191229
